FAERS Safety Report 17760312 (Version 1)
Quarter: 2020Q2

REPORT INFORMATION
  Report Type: Spontaneous
  Country: US (occurrence: US)
  Receive Date: 20200507
  Receipt Date: 20200507
  Transmission Date: 20200714
  Serious: No
  Sender: FDA-Public Use
  Company Number: None

PATIENT
  Age: 59 Year
  Sex: Male

DRUGS (2)
  1. RINVOQ [Suspect]
     Active Substance: UPADACITINIB
     Indication: RHEUMATOID ARTHRITIS
     Route: 048
     Dates: start: 202003
  2. H.P. ACTHAR [Concomitant]
     Active Substance: CORTICOTROPIN
     Dates: start: 201801

REACTIONS (3)
  - Blood count abnormal [None]
  - Dyspnoea [None]
  - Therapy interrupted [None]
